FAERS Safety Report 5207742-9 (Version None)
Quarter: 2006Q4

REPORT INFORMATION
  Report Type: 
  Country: None (occurrence: None)
  Receive Date: 20061030
  Receipt Date: 20060623
  Transmission Date: 20070319
  Serious: Yes (Death, Hospitalization)
  Sender: FDA-Public Use
  Company Number: 2006CT000756

PATIENT
  Age: 64 Year
  Sex: Female
  Weight: 82.1011 kg

DRUGS (8)
  1. VENTAVIS [Suspect]
     Indication: PULMONARY HYPERTENSION
     Dosage: 5 UG; 6XD; INH
     Route: 055
     Dates: start: 20060309, end: 20060620
  2. ALLOPURINOL SODIUM [Concomitant]
  3. POTASSIUM CHLORIDE [Concomitant]
  4. LISINOPRIL [Concomitant]
  5. COREG [Concomitant]
  6. FUROSEMIDE [Concomitant]
  7. HUMULIN N [Concomitant]
  8. OXYGEN [Concomitant]

REACTIONS (1)
  - PULMONARY HYPERTENSION [None]
